FAERS Safety Report 10060783 (Version 1)
Quarter: 2014Q2

REPORT INFORMATION
  Report Type: Spontaneous
  Country: IT (occurrence: IT)
  Receive Date: 20140404
  Receipt Date: 20140404
  Transmission Date: 20141212
  Serious: Yes (Other)
  Sender: FDA-Public Use
  Company Number: IT-ASTRAZENECA-2014SE22314

PATIENT
  Sex: Male

DRUGS (3)
  1. ZOMIG [Suspect]
     Route: 048
     Dates: start: 2009
  2. RYTMONORM [Concomitant]
  3. VESSEL [Concomitant]

REACTIONS (2)
  - Drug dependence [Unknown]
  - Intentional product misuse [Unknown]
